FAERS Safety Report 11247285 (Version 1)
Quarter: 2015Q3

REPORT INFORMATION
  Report Type: Spontaneous
  Country: ES (occurrence: None)
  Receive Date: 20150706
  Receipt Date: 20150706
  Transmission Date: 20151125
  Serious: Yes (Death, Hospitalization)
  Sender: FDA-Public Use
  Company Number: 1637209

PATIENT
  Age: 54 Year
  Sex: Male

DRUGS (2)
  1. VANCOMYCIN (NON-SPECIFIC) [Suspect]
     Active Substance: VANCOMYCIN
     Indication: INFECTION
  2. TERLIPRESSIN [Suspect]
     Active Substance: TERLIPRESSIN
     Indication: HEPATORENAL SYNDROME

REACTIONS (4)
  - Linear IgA disease [None]
  - Necrosis [None]
  - Hepatorenal syndrome [None]
  - Nephropathy toxic [None]
